FAERS Safety Report 9672103 (Version 2)
Quarter: 2014Q1

REPORT INFORMATION
  Report Type: Report from Study
  Country: GB (occurrence: GB)
  Receive Date: 20131106
  Receipt Date: 20140129
  Transmission Date: 20141002
  Serious: Yes (Hospitalization)
  Sender: FDA-Public Use
  Company Number: GB-TEVA-442434USA

PATIENT
  Age: 78 Year
  Sex: Male

DRUGS (8)
  1. BENDAMUSTINE [Suspect]
     Indication: NON-HODGKIN^S LYMPHOMA
     Dosage: EVERY 4 WEEKS
     Route: 042
     Dates: start: 20130626
  2. BENDAMUSTINE [Suspect]
     Dosage: EVERY 4 WEEKS
     Route: 042
     Dates: start: 20131016
  3. OBINUTUZUMAB [Suspect]
     Route: 042
     Dates: start: 20130625
  4. OBINUTUZUMAB [Suspect]
     Dosage: VOLUME 250 ML; CONCENTRATION 4 MG/ML
     Route: 042
     Dates: start: 20131015
  5. ASPIRIN [Concomitant]
     Indication: BLOOD CHOLESTEROL INCREASED
     Dates: start: 2005
  6. SIMVASTIN [Concomitant]
     Indication: HYPERLIPIDAEMIA
     Dates: start: 2008
  7. FORTISIP [Concomitant]
     Indication: WEIGHT DECREASED
     Dates: start: 20130802
  8. PARACETAMOL [Concomitant]

REACTIONS (1)
  - Atrial flutter [Not Recovered/Not Resolved]
